FAERS Safety Report 8438435-2 (Version None)
Quarter: 2012Q2

REPORT INFORMATION
  Report Type: 
  Country: None (occurrence: None)
  Receive Date: 20120614
  Receipt Date: 20120601
  Transmission Date: 20120825
  Serious: Yes (Other)
  Sender: FDA-Public Use
  Company Number: US-UCBSA-050015

PATIENT
  Age: 59 Year
  Sex: Female

DRUGS (1)
  1. CIMZIA [Suspect]
     Indication: RHEUMATOID ARTHRITIS
     Dosage: 200 MG;NO. OF DOSES RECEIVED: 11
     Route: 058
     Dates: start: 20110810, end: 20111114

REACTIONS (1)
  - LUPUS-LIKE SYNDROME [None]
